FAERS Safety Report 12614070 (Version 1)
Quarter: 2016Q3

REPORT INFORMATION
  Report Type: Spontaneous
  Country: US (occurrence: None)
  Receive Date: 20160801
  Receipt Date: 20160801
  Transmission Date: 20161109
  Serious: No
  Sender: FDA-Public Use
  Company Number: None

PATIENT
  Sex: Female

DRUGS (14)
  1. CALCIUM [Concomitant]
     Active Substance: CALCIUM
  2. SPIRONOLACTONE. [Concomitant]
     Active Substance: SPIRONOLACTONE
  3. PRAVASTATIN. [Concomitant]
     Active Substance: PRAVASTATIN
  4. DIGOXIN. [Concomitant]
     Active Substance: DIGOXIN
  5. VITAMIN C [Concomitant]
     Active Substance: ASCORBIC ACID
  6. FUROSEMIDE. [Concomitant]
     Active Substance: FUROSEMIDE
  7. COLACE [Concomitant]
     Active Substance: DOCUSATE SODIUM
  8. OSTEODISLEX [Concomitant]
  9. POTASSIUM [Concomitant]
     Active Substance: POTASSIUM
  10. PREVACID [Concomitant]
     Active Substance: LANSOPRAZOLE
  11. ESTROGEN (ESTRIOL) VAGINAL CREAM [Concomitant]
  12. MULTIVITAMIN [Concomitant]
     Active Substance: VITAMINS
  13. NUTROPIN AQ [Suspect]
     Active Substance: SOMATROPIN
     Indication: GROWTH HORMONE DEFICIENCY
     Dosage: 1 INJECTION (S) ONCE A DAY GIVEN INTO/UNDER THE SKIN
  14. WARFARIN [Concomitant]
     Active Substance: WARFARIN

REACTIONS (4)
  - Memory impairment [None]
  - Product substitution issue [None]
  - Disturbance in attention [None]
  - Anxiety [None]
